FAERS Safety Report 14560599 (Version 3)
Quarter: 2018Q1

REPORT INFORMATION
  Report Type: Report from Study
  Country: None (occurrence: US)
  Receive Date: 20180222
  Receipt Date: 20180308
  Transmission Date: 20180509
  Serious: Yes (Other)
  Sender: FDA-Public Use
  Company Number: US-ABBVIE-18K-163-2262982-00

PATIENT
  Age: 54 Year
  Sex: Female
  Weight: 77.18 kg

DRUGS (4)
  1. ENBREL [Concomitant]
     Active Substance: ETANERCEPT
     Indication: ARTHRITIS
  2. HUMIRA [Suspect]
     Active Substance: ADALIMUMAB
     Indication: RHEUMATOID ARTHRITIS
     Route: 058
     Dates: start: 201701, end: 201707
  3. HUMIRA [Suspect]
     Active Substance: ADALIMUMAB
     Indication: PSORIATIC ARTHROPATHY
  4. CELEBREX [Concomitant]
     Active Substance: CELECOXIB
     Indication: ARTHRITIS

REACTIONS (6)
  - Injection site erythema [Recovered/Resolved]
  - Osteonecrosis [Recovering/Resolving]
  - Soft tissue atrophy [Recovering/Resolving]
  - Injection site rash [Recovered/Resolved]
  - Inflammation [Recovering/Resolving]
  - Injection site vesicles [Recovered/Resolved]

NARRATIVE: CASE EVENT DATE: 2017
